FAERS Safety Report 7214890-0 (Version None)
Quarter: 2011Q1

REPORT INFORMATION
  Report Type: 
  Country: None (occurrence: None)
  Receive Date: 20110107
  Receipt Date: 20100423
  Transmission Date: 20110831
  Serious: No
  Sender: FDA-Public Use
  Company Number: A0856492A

PATIENT
  Sex: Female

DRUGS (1)
  1. LOVAZA [Suspect]

REACTIONS (4)
  - NAUSEA [None]
  - DIZZINESS [None]
  - DIARRHOEA [None]
  - VOMITING [None]
